FAERS Safety Report 6162146-X (Version None)
Quarter: 2009Q2

REPORT INFORMATION
  Report Type: 
  Country: None (occurrence: None)
  Receive Date: 20090421
  Receipt Date: 20070531
  Transmission Date: 20091009
  Serious: Yes (Death, Hospitalization)
  Sender: FDA-Public Use
  Company Number: FR-PFIZER INC-2009188637

PATIENT

DRUGS (3)
  1. EPIRUBICIN HCL [Suspect]
     Indication: GASTRIC CANCER
     Dates: start: 20060828
  2. CISPLATIN [Suspect]
     Indication: GASTRIC CANCER
     Dates: start: 20060828
  3. CAPECITABINE [Suspect]
     Indication: GASTRIC CANCER
     Dates: start: 20060828

REACTIONS (4)
  - ENTEROCOLITIS [None]
  - FEBRILE NEUTROPENIA [None]
  - GENERAL PHYSICAL HEALTH DETERIORATION [None]
  - SEPTIC SHOCK [None]
